FAERS Safety Report 6251610-0 (Version None)
Quarter: 2009Q2

REPORT INFORMATION
  Report Type: 
  Country: None (occurrence: None)
  Receive Date: 20090630
  Receipt Date: 20090622
  Transmission Date: 20091009
  Serious: Yes (Other)
  Sender: FDA-Public Use
  Company Number: US-PURDUE-USA-2009-0038727

PATIENT
  Age: 45 Year
  Sex: Male

DRUGS (2)
  1. OXYCODONE HYDROCHLORIDE [Suspect]
     Indication: DRUG USE FOR UNKNOWN INDICATION
  2. ALCOHOL                            /00002101/ [Suspect]
     Indication: DRUG USE FOR UNKNOWN INDICATION

REACTIONS (6)
  - ALCOHOL POISONING [None]
  - DRUG ABUSE [None]
  - DYSARTHRIA [None]
  - EYE DISORDER [None]
  - IMPAIRED DRIVING ABILITY [None]
  - OCULAR HYPERAEMIA [None]
